FAERS Safety Report 18024733 (Version 1)
Quarter: 2020Q3

REPORT INFORMATION
  Report Type: Spontaneous
  Country: US (occurrence: US)
  Receive Date: 20200714
  Receipt Date: 20200714
  Transmission Date: 20201103
  Serious: Yes (Hospitalization)
  Sender: FDA-Public Use
  Company Number: None

PATIENT
  Age: 42 Year
  Sex: Male

DRUGS (6)
  1. COMBIVENT RESPIMENT [Concomitant]
  2. DUONEB [Concomitant]
     Active Substance: ALBUTEROL SULFATE\IPRATROPIUM BROMIDE
  3. SILDENAFIL. [Concomitant]
     Active Substance: SILDENAFIL
  4. NASALIDE [Concomitant]
     Active Substance: FLUNISOLIDE
  5. AMBRISENTAN 5MG TABLETS 30/BO: 5MG [Suspect]
     Active Substance: AMBRISENTAN
     Indication: PULMONARY ARTERIAL HYPERTENSION
     Route: 048
  6. FUROSEMIDE. [Concomitant]
     Active Substance: FUROSEMIDE

REACTIONS (5)
  - Pyrexia [None]
  - Dyspnoea [None]
  - Chest X-ray abnormal [None]
  - Headache [None]
  - Interstitial lung disease [None]

NARRATIVE: CASE EVENT DATE: 20200617
